FAERS Safety Report 13520952 (Version 1)
Quarter: 2017Q2

REPORT INFORMATION
  Report Type: Spontaneous
  Country: US (occurrence: US)
  Receive Date: 20170508
  Receipt Date: 20170508
  Transmission Date: 20170830
  Serious: No
  Sender: FDA-Public Use
  Company Number: US-JNJFOC-20170330118

PATIENT
  Age: 67 Year
  Sex: Female
  Weight: 61.24 kg

DRUGS (4)
  1. FENTANYL. [Suspect]
     Active Substance: FENTANYL
     Indication: PROCEDURAL PAIN
     Route: 062
  2. DURAGESIC [Suspect]
     Active Substance: FENTANYL
     Indication: PROCEDURAL PAIN
     Dosage: 1 PATCH OF 50 MCG AND 1 PATCH OF 12 MCG
     Route: 062
     Dates: start: 2008
  3. DURAGESIC [Suspect]
     Active Substance: FENTANYL
     Indication: PROCEDURAL PAIN
     Dosage: FOR 2 WEEKS
     Route: 062
     Dates: start: 2015
  4. DURAGESIC [Suspect]
     Active Substance: FENTANYL
     Indication: PROCEDURAL PAIN
     Dosage: EXPIRY: 30-NOV-2017 CATEGORY: QUALITY INVESTIGATION FOR AE, POTENCY, LACK OF EFFECT/DECREASED EFFECT
     Route: 062
     Dates: start: 201605

REACTIONS (7)
  - Bladder disorder [Unknown]
  - Product quality issue [Unknown]
  - Withdrawal syndrome [Unknown]
  - Drug ineffective [Unknown]
  - Adverse drug reaction [Unknown]
  - Erythema [Not Recovered/Not Resolved]
  - Urinary tract infection [Unknown]

NARRATIVE: CASE EVENT DATE: 201703
